FAERS Safety Report 16487603 (Version 1)
Quarter: 2019Q2

REPORT INFORMATION
  Report Type: Spontaneous
  Country: HR (occurrence: HR)
  Receive Date: 20190627
  Receipt Date: 20190627
  Transmission Date: 20190711
  Serious: Yes (Hospitalization, Other)
  Sender: FDA-Public Use
  Company Number: HR-MYLANLABS-2019M1057326

PATIENT
  Age: 31 Year
  Sex: Female

DRUGS (40)
  1. SERTRALINE [Suspect]
     Active Substance: SERTRALINE HYDROCHLORIDE
     Indication: PAIN
     Dosage: 1 DOSAGE FORM, QD,1DF:1 TABLET APR09 50MG
     Route: 065
     Dates: start: 200805
  2. LEVOTHYROXINE SODIUM. [Suspect]
     Active Substance: LEVOTHYROXINE SODIUM
     Dosage: 50 MICROGRAM
     Route: 065
     Dates: start: 200805
  3. LEVOTHYROXINE SODIUM. [Suspect]
     Active Substance: LEVOTHYROXINE SODIUM
     Dosage: 50 MICROGRAM
     Route: 065
     Dates: start: 200904
  4. NEUROBION FORTE [Suspect]
     Active Substance: CYANOCOBALAMIN\PYRIDOXINE HYDROCHLORIDE\THIAMINE DISULFIDE
     Indication: PAIN
     Dosage: 1 DOSAGE FORM, BID,2 X 1 TABLET
     Route: 065
     Dates: start: 200805
  5. DIAZEPAM. [Suspect]
     Active Substance: DIAZEPAM
     Indication: PAIN
     Dosage: 5 MILLIGRAM, QD,5 UG, QD
     Route: 065
     Dates: start: 200709
  6. OXYCODONE [Suspect]
     Active Substance: OXYCODONE
     Indication: PAIN
     Dosage: 10 MILLIGRAM, TID,DOSE: 10 MG, 3X PER DAY
     Route: 065
     Dates: start: 200904
  7. LEVOTHYROXINE SODIUM. [Suspect]
     Active Substance: LEVOTHYROXINE SODIUM
     Dosage: 50 MICROGRAM
     Route: 065
     Dates: start: 201004
  8. ALPRAZOLAM. [Suspect]
     Active Substance: ALPRAZOLAM
     Indication: PAIN
     Dosage: 0.5 MILLIGRAM, TID,DOSE: 0,5 MG 3X1
     Route: 065
     Dates: start: 200805
  9. FEXOFENADINE HYDROCHLORIDE. [Suspect]
     Active Substance: FEXOFENADINE HYDROCHLORIDE
     Indication: HEADACHE
     Dosage: 180 MG, UNK
     Route: 065
     Dates: start: 201003
  10. GINKGO BILOBA [Suspect]
     Active Substance: GINKGO
     Indication: RASH
     Dosage: 120 MG, UNK
     Route: 065
     Dates: start: 201003
  11. GABAPENTIN. [Suspect]
     Active Substance: GABAPENTIN
     Indication: MENTAL DISORDER
  12. PARACETAMOL + TRAMADOL HYDROCHLORIDE [Suspect]
     Active Substance: ACETAMINOPHEN\TRAMADOL HYDROCHLORIDE
     Dosage: 37.5 MILLIGRAM, QD,37.5 MG/325MG 2 TABLETS 3 TIMES PER DAY
     Route: 065
     Dates: start: 200904
  13. DIAZEPAM. [Suspect]
     Active Substance: DIAZEPAM
     Dosage: QD, DOSE: 2 MG, 2 MG, 5 MG
     Route: 065
     Dates: start: 201003
  14. ALPRAZOLAM. [Concomitant]
     Active Substance: ALPRAZOLAM
     Indication: PERSISTENT DEPRESSIVE DISORDER
     Dosage: UNK
     Dates: start: 200805
  15. SERTRALINE [Suspect]
     Active Substance: SERTRALINE HYDROCHLORIDE
     Indication: HEADACHE
     Dosage: 50 MG, QD
     Route: 065
     Dates: start: 200805
  16. LEVOTHYROXINE SODIUM. [Suspect]
     Active Substance: LEVOTHYROXINE SODIUM
     Indication: PAIN
     Dosage: 50 MICROGRAM
     Route: 065
  17. LEVOTHYROXINE SODIUM. [Suspect]
     Active Substance: LEVOTHYROXINE SODIUM
     Dosage: 75 MICROGRAM
     Route: 065
     Dates: start: 200703
  18. BACLOFEN. [Suspect]
     Active Substance: BACLOFEN
     Dosage: 25 MILLIGRAM, TID,DOSE: 3X25 MG
     Route: 065
     Dates: start: 200805
  19. RANITIDINE. [Suspect]
     Active Substance: RANITIDINE
     Indication: PRODUCT USED FOR UNKNOWN INDICATION
     Dosage: 150 MILLIGRAM, BID,DOSE: 2X150 MG
     Route: 065
     Dates: start: 200709
  20. ESOMEPRAZOLE. [Suspect]
     Active Substance: ESOMEPRAZOLE MAGNESIUM
     Indication: ASTHENIA
     Dosage: 20 MILLIGRAM, BID,DOSE: 2X20 MG
     Route: 065
     Dates: start: 201003
  21. TRAMADOL. [Concomitant]
     Active Substance: TRAMADOL
     Indication: PAIN
     Dosage: 37.5 MILLIGRAM
     Route: 065
  22. IBUPROFEN. [Suspect]
     Active Substance: IBUPROFEN
     Indication: PAIN
     Dosage: 400 MG
     Route: 065
     Dates: start: 200703
  23. BUPRENORPHINE. [Suspect]
     Active Substance: BUPRENORPHINE
     Indication: BRADYPHRENIA
     Dosage: 70 MICROGRAM, Q3D,70 UG/72H
     Route: 065
     Dates: start: 200904
  24. NEUROBION FORTE [Concomitant]
     Active Substance: CYANOCOBALAMIN\PYRIDOXINE HYDROCHLORIDE\THIAMINE DISULFIDE
     Indication: ASTHENIA
     Dosage: UNK
     Route: 065
     Dates: start: 200805
  25. SERTRALINE [Suspect]
     Active Substance: SERTRALINE HYDROCHLORIDE
     Dosage: 50 MILLIGRAM, QD,DOSE: 50 MG 1X1
     Route: 065
     Dates: start: 200904
  26. BACLOFEN. [Suspect]
     Active Substance: BACLOFEN
     Indication: PAIN
     Dosage: 10 MILLIGRAM, TID,DOSE: 3X10 MG
     Route: 065
     Dates: start: 200709
  27. CARBAMAZEPINE. [Suspect]
     Active Substance: CARBAMAZEPINE
     Indication: PAIN
     Dosage: 200 MILLIGRAM, QD,DOSE: 3X200 MG
     Route: 065
     Dates: start: 200709
  28. FEXOFENADINE HYDROCHLORIDE. [Suspect]
     Active Substance: FEXOFENADINE HYDROCHLORIDE
     Indication: PAIN
     Dosage: 180 MG, UNK
     Route: 065
  29. PARACETAMOL + TRAMADOL HYDROCHLORIDE [Suspect]
     Active Substance: ACETAMINOPHEN\TRAMADOL HYDROCHLORIDE
     Indication: PAIN
     Dosage: 2 DOSAGE FORM, QD,1DF:3 TIMES 2 TABLETS(TRAMADOL 37.5MG,PARACETAMOL 325MG)
     Route: 065
     Dates: start: 200709
  30. PIROXICAM. [Suspect]
     Active Substance: PIROXICAM
     Indication: PAIN
     Dosage: 20 MG
     Route: 065
     Dates: start: 200709
  31. OXYCODONE [Suspect]
     Active Substance: OXYCODONE
     Dosage: 10 MILLIGRAM, TID,10 MG, 3X PER DAY
     Route: 065
     Dates: start: 201003
  32. BACLOFEN. [Suspect]
     Active Substance: BACLOFEN
     Dosage: 25 MILLIGRAM, TID
     Route: 065
     Dates: start: 200904
  33. BACLOFEN. [Suspect]
     Active Substance: BACLOFEN
     Dosage: 25 MILLIGRAM, TID (QD)
     Route: 065
     Dates: start: 201003
  34. FENTANYL. [Suspect]
     Active Substance: FENTANYL
     Indication: PAIN
     Dosage: 100 MICROGRAM, Q3D
     Route: 062
     Dates: start: 201003
  35. PANTOPRAZOLE [Suspect]
     Active Substance: PANTOPRAZOLE
     Indication: PRODUCT USED FOR UNKNOWN INDICATION
     Dosage: 20 MG, UNK
     Route: 065
     Dates: start: 200904
  36. PREGABALIN. [Suspect]
     Active Substance: PREGABALIN
     Indication: PAIN
     Dosage: 300 MILLIGRAM, BID,DOSE: 2X300 MG
     Route: 065
     Dates: start: 201003
  37. LEVOTHYROXINE SODIUM. [Suspect]
     Active Substance: LEVOTHYROXINE SODIUM
     Indication: QUADRIPARESIS
     Dosage: 50 MICROGRAM
     Route: 065
     Dates: start: 200703
  38. GABAPENTIN. [Suspect]
     Active Substance: GABAPENTIN
     Indication: PAIN
     Dosage: 300 MILLIGRAM, TID,DOSE: 3X300 MG
     Route: 065
     Dates: start: 200904
  39. PARACETAMOL + TRAMADOL HYDROCHLORIDE [Suspect]
     Active Substance: ACETAMINOPHEN\TRAMADOL HYDROCHLORIDE
     Dosage: 2 DOSAGE FORM, QD,DOSE: 3X 2 (375/325MG)
     Route: 065
     Dates: start: 200805
  40. PARACETAMOL + TRAMADOL HYDROCHLORIDE [Suspect]
     Active Substance: ACETAMINOPHEN\TRAMADOL HYDROCHLORIDE
     Dosage: UNK
     Route: 065
     Dates: start: 201003

REACTIONS (35)
  - Dizziness [Unknown]
  - Psychomotor skills impaired [Unknown]
  - Sedation [Unknown]
  - Fatigue [Unknown]
  - Drug ineffective [Unknown]
  - Gastrointestinal motility disorder [Unknown]
  - Sensory disturbance [Unknown]
  - Loss of consciousness [Unknown]
  - Erythema [Unknown]
  - Rash [Unknown]
  - Nausea [Unknown]
  - Euphoric mood [Unknown]
  - Ataxia [Unknown]
  - Condition aggravated [Unknown]
  - Pain [Unknown]
  - Cognitive disorder [Unknown]
  - Constipation [Unknown]
  - Schizophrenia [Unknown]
  - Neurosis [Unknown]
  - Diplopia [Unknown]
  - Confusional state [Unknown]
  - Vomiting [Unknown]
  - Quadriparesis [Unknown]
  - Feeling abnormal [Unknown]
  - Anxiety [Unknown]
  - Pruritus [Unknown]
  - Disturbance in attention [Unknown]
  - Syncope [Unknown]
  - Asthenia [Unknown]
  - Musculoskeletal stiffness [Unknown]
  - Persistent depressive disorder [Unknown]
  - Headache [Unknown]
  - Depression [Unknown]
  - Conversion disorder [Unknown]
  - Oedema [Unknown]
